FAERS Safety Report 6010609-X (Version None)
Quarter: 2008Q4

REPORT INFORMATION
  Report Type: 
  Country: None (occurrence: None)
  Receive Date: 20081218
  Receipt Date: 20080904
  Transmission Date: 20090506
  Serious: No
  Sender: FDA-Public Use
  Company Number: US-AMGEN-KDL256937

PATIENT
  Sex: Female

DRUGS (1)
  1. ENBREL [Suspect]
     Indication: RHEUMATOID ARTHRITIS
     Route: 058
     Dates: start: 20051210

REACTIONS (11)
  - EAR HAEMORRHAGE [None]
  - FATIGUE [None]
  - HYPOACUSIS [None]
  - MIDDLE EAR EFFUSION [None]
  - OROPHARYNGEAL PAIN [None]
  - PHARYNGEAL OEDEMA [None]
  - PRODUCTIVE COUGH [None]
  - PULMONARY CONGESTION [None]
  - RHEUMATOID ARTHRITIS [None]
  - SINUS CONGESTION [None]
  - TINNITUS [None]
